FAERS Safety Report 7648707-7 (Version None)
Quarter: 2011Q3

REPORT INFORMATION
  Report Type: 
  Country: None (occurrence: None)
  Receive Date: 20110801
  Receipt Date: 20110722
  Transmission Date: 20111222
  Serious: Yes (Hospitalization)
  Sender: FDA-Public Use
  Company Number: PHHY2011US22687

PATIENT
  Sex: Female

DRUGS (6)
  1. LEXAPRO [Concomitant]
     Dosage: 10 MG, DAILY
  2. ALLEGRA [Concomitant]
     Dosage: 180 MG, DAILY
  3. VESICARE [Concomitant]
     Dosage: 5 MG,DAILY
  4. LIPITOR [Concomitant]
     Dosage: 10 MG, DAILY
  5. NAMENDA [Concomitant]
     Dosage: 10 MG, BID
  6. GILENYA [Suspect]
     Indication: RELAPSING-REMITTING MULTIPLE SCLEROSIS
     Dosage: 0.5 MG, QD
     Route: 048
     Dates: start: 20110311, end: 20110317

REACTIONS (9)
  - MULTIPLE SCLEROSIS RELAPSE [None]
  - HYPOPHAGIA [None]
  - UROSEPSIS [None]
  - ESCHERICHIA URINARY TRACT INFECTION [None]
  - ASTHENIA [None]
  - FAILURE TO THRIVE [None]
  - PYREXIA [None]
  - GAIT DISTURBANCE [None]
  - INCONTINENCE [None]
